FAERS Safety Report 8805110 (Version 1)
Quarter: 2012Q4

REPORT INFORMATION
  Report Type: 
  Country: US (occurrence: US)
  Receive Date: 20120924
  Receipt Date: 20120924
  Transmission Date: 20130627
  Serious: No
  Sender: FDA-Public Use
  Company Number: US-ALLERGAN-1209549US

PATIENT
  Age: 64 Year
  Sex: Female

DRUGS (34)
  1. LUMIGAN� 0.01% [Suspect]
     Indication: GLAUCOMA
     Dosage: 2 Gtt, qhs
     Route: 047
     Dates: start: 20120703
  2. ARMOUR THYROID [Concomitant]
     Indication: HYPOTHYROIDISM
     Dosage: UNK
  3. HRT [Concomitant]
     Indication: DRUG USE FOR UNKNOWN INDICATION
     Dosage: UNK
  4. ASA [Concomitant]
     Indication: CARDIOVASCULAR EVENT PROPHYLAXIS
     Dosage: 81 mg, UNK
  5. TAURINE [Concomitant]
     Indication: NUTRITIONAL SUPPORT
     Dosage: UNK
  6. PREVAGEN [Concomitant]
     Indication: NUTRITIONAL SUPPORT
     Dosage: UNK
  7. CALCIUM +D3 [Concomitant]
     Indication: NUTRITIONAL SUPPORT
     Dosage: UNK
  8. VITAMIN K NOS [Concomitant]
     Indication: NUTRITIONAL SUPPORT
     Dosage: UNK
  9. VITAMIN C                          /00008001/ [Concomitant]
     Indication: NUTRITIONAL SUPPORT
     Dosage: 3000 mg, UNK
  10. ZINC [Concomitant]
     Indication: NUTRITIONAL SUPPORT
     Dosage: UNK
  11. SOY COMPLEX [Concomitant]
     Indication: NUTRITIONAL SUPPORT
     Dosage: UNK
  12. OMEGA 3 [Concomitant]
     Indication: NUTRITIONAL SUPPORT
     Dosage: UNK
  13. KRILL OIL [Concomitant]
     Indication: NUTRITIONAL SUPPORT
     Dosage: UNK
  14. CO ENZYME Q10 [Concomitant]
     Indication: NUTRITIONAL SUPPORT
     Dosage: UNK
  15. VITAMIN E                          /00110501/ [Concomitant]
     Indication: NUTRITIONAL SUPPORT
     Dosage: UNK
  16. QUERETIN [Concomitant]
     Indication: NUTRITIONAL SUPPORT
     Dosage: UNK
  17. DHEA [Concomitant]
     Indication: NUTRITIONAL SUPPORT
     Dosage: UNK
  18. LYCOPENE [Concomitant]
     Indication: NUTRITIONAL SUPPORT
     Dosage: UNK
  19. HAWTHORN [Concomitant]
     Indication: NUTRITIONAL SUPPORT
     Dosage: UNK
  20. BILLBERRY [Concomitant]
     Indication: NUTRITIONAL SUPPORT
     Dosage: UNK
  21. OLIVE LEAVES EXTRACT [Concomitant]
     Indication: NUTRITIONAL SUPPORT
     Dosage: UNK
  22. SHRONOIUM [Concomitant]
     Indication: NUTRITIONAL SUPPORT
     Dosage: UNK
  23. PABA [Concomitant]
     Indication: NUTRITIONAL SUPPORT
     Dosage: UNK
  24. WHEY [Concomitant]
     Indication: NUTRITIONAL SUPPORT
     Dosage: UNK
  25. RESERVATROL [Concomitant]
     Indication: NUTRITIONAL SUPPORT
     Dosage: UNK
  26. NIACIN [Concomitant]
     Indication: NUTRITIONAL SUPPORT
     Dosage: UNK
  27. LUTEIN [Concomitant]
     Indication: NUTRITIONAL SUPPORT
     Dosage: UNK
  28. GABA                               /00522701/ [Concomitant]
     Indication: NUTRITIONAL SUPPORT
     Dosage: UNK
  29. PREDNALONE [Concomitant]
     Indication: NUTRITIONAL SUPPORT
     Dosage: UNK
  30. PROBIOTICS [Concomitant]
     Indication: NUTRITIONAL SUPPORT
     Dosage: UNK
  31. MELATONIN [Concomitant]
     Indication: NUTRITIONAL SUPPORT
     Dosage: UNK
  32. CRANBERRY                          /01512301/ [Concomitant]
     Indication: NUTRITIONAL SUPPORT
     Dosage: UNK
  33. PQQ [Concomitant]
     Indication: NUTRITIONAL SUPPORT
     Dosage: UNK
  34. CREATINE [Concomitant]
     Indication: NUTRITIONAL SUPPORT
     Dosage: UNK

REACTIONS (1)
  - Hyperhidrosis [Not Recovered/Not Resolved]
